FAERS Safety Report 8904598 (Version 1)
Quarter: 2012Q4

REPORT INFORMATION
  Report Type: 
  Country: US (occurrence: US)
  Receive Date: 20121109
  Receipt Date: 20121109
  Transmission Date: 20130627
  Serious: Yes (Other)
  Sender: FDA-Public Use
  Company Number: US-BAYER-2012-117177

PATIENT
  Age: 62 Year
  Sex: Female
  Weight: 81.63 kg

DRUGS (1)
  1. ALKA-SELTZER XTRA STRENGTH [Suspect]
     Indication: STOMACH UPSET
     Dosage: 2 DF, PRN
     Route: 048

REACTIONS (2)
  - Haematochezia [None]
  - Abdominal pain upper [None]
